FAERS Safety Report 9806098 (Version 1)
Quarter: 2014Q1

REPORT INFORMATION
  Report Type: Spontaneous
  Country: MY (occurrence: None)
  Receive Date: 20140107
  Receipt Date: 20140107
  Transmission Date: 20141002
  Serious: Yes (Other)
  Sender: FDA-Public Use
  Company Number: 2013000372

PATIENT
  Age: 34 Year
  Sex: Female

DRUGS (11)
  1. ACEON (PERINDOPRIL ERBUMINE) TABLET, 8MG [Suspect]
     Indication: HYPERTENSION
     Route: 048
  2. METHOTREXATE (METHOTREXATE SODIUM) [Suspect]
     Indication: PSORIASIS
     Dosage: SINGLE
     Route: 042
  3. CIPROFLOXACIN (CIPROFLOXACIN) [Suspect]
     Indication: URINARY TRACT INFECTION
     Route: 048
  4. PARACETAMOL (PARACETAMOL) [Concomitant]
  5. ASCORBIC ACID (ASCORBIC ACID) [Concomitant]
  6. PREDNISOLONE [Concomitant]
  7. CELECOXIB [Concomitant]
  8. CALCIUM CARBONATE [Concomitant]
  9. FELODIPINE [Concomitant]
  10. FERROUS FUMARATE [Concomitant]
  11. FOLIC ACID [Concomitant]

REACTIONS (3)
  - Mucosal inflammation [None]
  - Thrombocytopenia [None]
  - Leukopenia [None]
